FAERS Safety Report 20897756 (Version 4)
Quarter: 2022Q2

REPORT INFORMATION
  Report Type: Spontaneous
  Country: IT (occurrence: IT)
  Receive Date: 20220531
  Receipt Date: 20220622
  Transmission Date: 20220721
  Serious: Yes (Hospitalization)
  Sender: FDA-Public Use
  Company Number: IT-ROCHE-3099559

PATIENT
  Age: 72 Year
  Sex: Female
  Weight: 100 kg

DRUGS (4)
  1. CARBOPLATIN [Suspect]
     Active Substance: CARBOPLATIN
     Indication: Breast cancer
     Dosage: 300 MG, ON 04MAY2022 SHE HAD LAST DOSE BEFORE SAE, NO OF COURSES; 4
     Route: 042
     Dates: start: 20220208
  2. TRASTUZUMAB [Suspect]
     Active Substance: TRASTUZUMAB
     Indication: Breast cancer
     Dosage: 1200 MG ON 27APR2022  SHE HAD  LAST DOSE BEFORE SAE, NO OF COURSES ; 4
     Route: 042
     Dates: start: 20220208
  3. PERTUZUMAB [Suspect]
     Active Substance: PERTUZUMAB
     Indication: Breast cancer
     Dosage: UNK
     Route: 042
  4. TAXOL [Suspect]
     Active Substance: PACLITAXEL
     Indication: Breast cancer
     Dosage: 180 MG, ON 04MAY2022 SHE HAD LAST DOSE BEFORE SAE, NO OF COURSES; 4
     Route: 042
     Dates: start: 20220208

REACTIONS (4)
  - Diarrhoea [Recovered/Resolved]
  - Tachycardia [Not Recovered/Not Resolved]
  - Neutrophil count decreased [Unknown]
  - Blood potassium decreased [Unknown]

NARRATIVE: CASE EVENT DATE: 20220513
